FAERS Safety Report 25856688 (Version 2)
Quarter: 2025Q4

REPORT INFORMATION
  Report Type: Spontaneous
  Country: EU (occurrence: EU)
  Receive Date: 20250929
  Receipt Date: 20251120
  Transmission Date: 20260117
  Serious: Yes (Other)
  Sender: AUROBINDO
  Company Number: EU-PFIZER INC-2021796486

PATIENT
  Age: 65 Year
  Sex: Female

DRUGS (1)
  1. LEVOFLOXACIN [Suspect]
     Active Substance: LEVOFLOXACIN
     Indication: Product used for unknown indication
     Dosage: UNK
     Route: 065

REACTIONS (7)
  - Anaphylactic reaction [Recovered/Resolved]
  - Drug eruption [Unknown]
  - Malaise [Recovering/Resolving]
  - Chest pain [Recovering/Resolving]
  - Drug hypersensitivity [Recovering/Resolving]
  - Angioedema [Unknown]
  - Dyspnoea [Unknown]
